FAERS Safety Report 5532818-6 (Version None)
Quarter: 2007Q4

REPORT INFORMATION
  Report Type: 
  Country: None (occurrence: None)
  Receive Date: 20071130
  Receipt Date: 20071130
  Transmission Date: 20080405
  Serious: Yes (Other)
  Sender: FDA-Public Use
  Company Number: None

PATIENT
  Sex: Male
  Weight: 86.1834 kg

DRUGS (5)
  1. LAMISIL [Suspect]
     Indication: ONYCHOMYCOSIS
     Dates: start: 20071004, end: 20071105
  2. PREDNISONE [Concomitant]
  3. VYTORIN [Concomitant]
  4. ASPIRIN [Concomitant]
  5. TOPROL-XL [Concomitant]

REACTIONS (4)
  - DIPLOPIA [None]
  - DISEASE RECURRENCE [None]
  - MUSCULAR WEAKNESS [None]
  - MYASTHENIA GRAVIS [None]
